FAERS Safety Report 15629315 (Version 1)
Quarter: 2018Q4

REPORT INFORMATION
  Report Type: Spontaneous
  Country: ES (occurrence: ES)
  Receive Date: 20181117
  Receipt Date: 20181117
  Transmission Date: 20190205
  Serious: Yes (Death, Hospitalization)
  Sender: FDA-Public Use
  Company Number: ES-TEVA-2018-ES-975214

PATIENT
  Age: 88 Year
  Sex: Male

DRUGS (1)
  1. METFORMINA (1359A) [Suspect]
     Active Substance: METFORMIN HYDROCHLORIDE
     Route: 048
     Dates: start: 20180327, end: 20180331

REACTIONS (2)
  - Labelled drug-disease interaction medication error [Recovered/Resolved]
  - Lactic acidosis [Fatal]

NARRATIVE: CASE EVENT DATE: 20180327
